FAERS Safety Report 5358168-9 (Version None)
Quarter: 2007Q2

REPORT INFORMATION
  Report Type: 
  Country: None (occurrence: None)
  Receive Date: 20070530
  Receipt Date: 20061101
  Transmission Date: 20071010
  Serious: Yes (Hospitalization, Other)
  Sender: FDA-Public Use
  Company Number: US200605005815

PATIENT
  Age: 34 Year
  Sex: Male
  Weight: 80.7 kg

DRUGS (2)
  1. ZYPREXA [Suspect]
     Dosage: SEE IMAGE
     Dates: end: 20030301
  2. ZYPREXA [Suspect]
     Dosage: SEE IMAGE
     Dates: start: 20000301

REACTIONS (4)
  - DIABETES MELLITUS [None]
  - DIABETIC KETOACIDOSIS [None]
  - KETONURIA [None]
  - METABOLIC DISORDER [None]
